FAERS Safety Report 20123792 (Version 1)
Quarter: 2021Q4

REPORT INFORMATION
  Report Type: Spontaneous
  Country: US (occurrence: US)
  Receive Date: 20211129
  Receipt Date: 20211129
  Transmission Date: 20220304
  Serious: No
  Sender: FDA-Public Use
  Company Number: US-UCBSA-2020050955

PATIENT
  Age: 15 Year
  Sex: Male
  Weight: 50.8 kg

DRUGS (4)
  1. VIMPAT [Suspect]
     Active Substance: LACOSAMIDE
     Indication: Partial seizures with secondary generalisation
     Dosage: 0.5 MILLILITER, 2X/DAY (BID)
     Dates: start: 202011, end: 2020
  2. VIMPAT [Suspect]
     Active Substance: LACOSAMIDE
     Dosage: 1 MILLILITER, 2X/DAY (BID)
     Dates: start: 2020, end: 2020
  3. VIMPAT [Suspect]
     Active Substance: LACOSAMIDE
     Dosage: 1.5 MILLILITER, 2X/DAY (BID)
     Dates: start: 2020, end: 2020
  4. VIMPAT [Suspect]
     Active Substance: LACOSAMIDE
     Dosage: 3 MILLILITER, 2X/DAY (BID)
     Dates: start: 2020, end: 2020

REACTIONS (2)
  - Palmar erythema [Not Recovered/Not Resolved]
  - Feeling of body temperature change [Not Recovered/Not Resolved]

NARRATIVE: CASE EVENT DATE: 20201201
